FAERS Safety Report 6642520-5 (Version None)
Quarter: 2010Q1

REPORT INFORMATION
  Report Type: 
  Country: None (occurrence: None)
  Receive Date: 20100316
  Receipt Date: 20100308
  Transmission Date: 20100710
  Serious: Yes (Death, Other)
  Sender: FDA-Public Use
  Company Number: 2010JP001102

PATIENT
  Age: 60 Year
  Sex: Male

DRUGS (7)
  1. PROGRAF [Suspect]
     Indication: BONE MARROW TRANSPLANT
  2. FLUDARABINE PHOSPHATE [Concomitant]
  3. L-PAM (MELPHALAN) [Concomitant]
  4. METHOTREXATE [Concomitant]
  5. PREDNISOLONE [Concomitant]
  6. GANCICLOVIR [Concomitant]
  7. FOSCOVIR (FOSCARNET SODIUM) [Concomitant]

REACTIONS (4)
  - CYTOMEGALOVIRUS ENTERITIS [None]
  - LUNG INFECTION PSEUDOMONAL [None]
  - MELAENA [None]
  - PNEUMATOSIS INTESTINALIS [None]
